FAERS Safety Report 11221475 (Version 3)
Quarter: 2016Q2

REPORT INFORMATION
  Report Type: Spontaneous
  Country: US (occurrence: US)
  Receive Date: 20150626
  Receipt Date: 20160405
  Transmission Date: 20160815
  Serious: No
  Sender: FDA-Public Use
  Company Number: US-PFIZER INC-2015213000

PATIENT
  Age: 70 Year
  Sex: Male
  Weight: 84 kg

DRUGS (2)
  1. SUTENT [Suspect]
     Active Substance: SUNITINIB MALATE
     Dosage: 37.5 MG, CYCLIC (1 WEEK ON 1 WEEK OFF)
     Dates: start: 20150615
  2. SUTENT [Suspect]
     Active Substance: SUNITINIB MALATE
     Indication: RENAL CELL CARCINOMA
     Dosage: 50 MG, CYCLIC (1X/DAY)
     Dates: start: 20150205

REACTIONS (7)
  - Eye swelling [Recovered/Resolved]
  - Hyperaesthesia [Recovered/Resolved]
  - Odynophagia [Recovered/Resolved]
  - Diarrhoea [Not Recovered/Not Resolved]
  - Joint swelling [Recovered/Resolved]
  - Oesophageal pain [Recovered/Resolved]
  - Blister [Recovered/Resolved]

NARRATIVE: CASE EVENT DATE: 20150205
